FAERS Safety Report 6665953-X (Version None)
Quarter: 2010Q2

REPORT INFORMATION
  Report Type: 
  Country: None (occurrence: None)
  Receive Date: 20100402
  Receipt Date: 20100326
  Transmission Date: 20101027
  Serious: Yes (Other)
  Sender: FDA-Public Use
  Company Number: US-BAYER-201017922NA

PATIENT
  Age: 75 Year
  Sex: Female

DRUGS (1)
  1. ULTRAVIST 300 [Suspect]
     Indication: DRUG USE FOR UNKNOWN INDICATION
     Dosage: AS USED: 100 ML
     Route: 042
     Dates: start: 20100325, end: 20100325

REACTIONS (2)
  - DYSPHAGIA [None]
  - SWOLLEN TONGUE [None]
